FAERS Safety Report 7283951-2 (Version None)
Quarter: 2011Q1

REPORT INFORMATION
  Report Type: 
  Country: None (occurrence: None)
  Receive Date: 20110209
  Receipt Date: 20110131
  Transmission Date: 20110831
  Serious: Yes (Other)
  Sender: FDA-Public Use
  Company Number: PT-WATSON-2011-01342

PATIENT
  Age: 4 Year
  Sex: Male

DRUGS (1)
  1. BETAMETHASONE SODIUM PHOSPHATE [Suspect]
     Indication: ASTHMA PROPHYLAXIS
     Dosage: UNK
     Route: 048

REACTIONS (4)
  - ANGIOEDEMA [None]
  - TYPE I HYPERSENSITIVITY [None]
  - URTICARIA [None]
  - LOSS OF CONSCIOUSNESS [None]
